FAERS Safety Report 5003851-8 (Version None)
Quarter: 2006Q2

REPORT INFORMATION
  Report Type: 
  Country: None (occurrence: None)
  Receive Date: 20060515
  Receipt Date: 20060508
  Transmission Date: 20061013
  Serious: Yes (Death)
  Sender: FDA-Public Use
  Company Number: 060406-0000320

PATIENT
  Age: 23 Day
  Sex: Male

DRUGS (10)
  1. INDOCIN [Suspect]
     Indication: PATENT DUCTUS ARTERIOSUS
     Dosage: 0.14 IV
     Route: 042
     Dates: start: 20010613, end: 20010614
  2. DOBUTREX [Concomitant]
  3. ESPO (EPOETIN ALFA) [Concomitant]
  4. DOPAMINE HYDROCHLORIDE [Concomitant]
  5. FUROSEMIDE [Concomitant]
  6. PIPERACILLIN SODIUM [Concomitant]
  7. VENOGLOBULIN [Concomitant]
  8. AMINOPHYLLIN [Concomitant]
  9. CALCIUM GLUCONATE [Concomitant]
  10. VANCOMYCIN [Concomitant]

REACTIONS (1)
  - GASTROINTESTINAL PERFORATION [None]
